FAERS Safety Report 22621066 (Version 1)
Quarter: 2023Q2

REPORT INFORMATION
  Report Type: Spontaneous
  Country: US (occurrence: US)
  Receive Date: 20230620
  Receipt Date: 20230620
  Transmission Date: 20230721
  Serious: No
  Sender: FDA-Public Use
  Company Number: US-PFIZER INC-202300222539

PATIENT
  Age: 66 Year
  Sex: Female
  Weight: 68.04 kg

DRUGS (1)
  1. XELJANZ XR [Suspect]
     Active Substance: TOFACITINIB CITRATE
     Indication: Rheumatoid arthritis
     Dosage: 11 MG, 1X/DAY
     Dates: start: 202206

REACTIONS (3)
  - Erythema [Not Recovered/Not Resolved]
  - Contusion [Not Recovered/Not Resolved]
  - Hypoacusis [Unknown]

NARRATIVE: CASE EVENT DATE: 20220601
